FAERS Safety Report 8956854 (Version 1)
Quarter: 2012Q4

REPORT INFORMATION
  Report Type: Report from Study
  Country: AT (occurrence: AT)
  Receive Date: 20121210
  Receipt Date: 20121210
  Transmission Date: 20130627
  Serious: Yes (Death, Hospitalization)
  Sender: FDA-Public Use
  Company Number: AT-ROCHE-1125923

PATIENT
  Age: 65 Year
  Sex: Male
  Weight: 60 kg

DRUGS (17)
  1. CAPECITABINE [Suspect]
     Indication: PANCREATIC CARCINOMA
     Dosage: last dose prior to SAE on: 10/sep/2012
     Route: 048
     Dates: start: 20120806, end: 20120910
  2. ERLOTINIB [Suspect]
     Indication: PANCREATIC CARCINOMA
     Dosage: Last dose prior to SAE on: 09/sep/2012
     Route: 048
     Dates: start: 20120806, end: 20120909
  3. BEVACIZUMAB [Suspect]
     Indication: PANCREATIC CARCINOMA
     Dosage: Last dose prior to SAE on : 04/sep/2012
     Route: 042
     Dates: start: 20120806, end: 20120910
  4. KREON [Concomitant]
     Route: 065
     Dates: start: 20120717, end: 20120921
  5. PAO PEREIRA [Concomitant]
     Route: 065
     Dates: start: 20120717, end: 20120923
  6. XEFO [Concomitant]
     Route: 065
     Dates: start: 20120717, end: 20120921
  7. PANTOLOC [Concomitant]
     Route: 065
     Dates: start: 201206
  8. TRAMOL [Concomitant]
     Dosage: retard
     Route: 065
     Dates: start: 20120717, end: 20120921
  9. LOVENOX [Concomitant]
     Route: 065
     Dates: start: 20120717, end: 20120921
  10. VALSARTAN [Concomitant]
     Route: 065
     Dates: start: 2012, end: 20120918
  11. EFFORTIL [Concomitant]
     Route: 065
     Dates: start: 20120827, end: 20120923
  12. BUSCOPAN [Concomitant]
     Route: 065
     Dates: start: 20120910, end: 20120912
  13. DURAGESIC [Concomitant]
     Dosage: 25 mg/h
     Route: 065
     Dates: start: 20120921, end: 20120923
  14. HYDOL [Concomitant]
     Dosage: 25 mg/ml
     Route: 058
     Dates: start: 20120922, end: 20120923
  15. TRAVOCORT [Concomitant]
     Dosage: pRN
     Route: 065
     Dates: start: 20120913, end: 20120923
  16. TRAMOL [Concomitant]
     Dosage: drops
     Route: 065
     Dates: start: 20120914, end: 20120914
  17. DIFLUCAN [Concomitant]
     Route: 065
     Dates: start: 20120913, end: 20120915

REACTIONS (2)
  - Vertigo [Fatal]
  - Deep vein thrombosis [Recovered/Resolved with Sequelae]
